FAERS Safety Report 8947350 (Version 2)
Quarter: 2013Q1

REPORT INFORMATION
  Report Type: Spontaneous
  Country: US (occurrence: US)
  Receive Date: 20121205
  Receipt Date: 20130129
  Transmission Date: 20140127
  Serious: Yes (Death)
  Sender: FDA-Public Use
  Company Number: US-JNJFOC-20121201145

PATIENT
  Sex: Male

DRUGS (2)
  1. ZYTIGA [Suspect]
     Indication: PROSTATE CANCER METASTATIC
     Route: 048
     Dates: end: 2012
  2. UNKNOWN MEDICATION [Concomitant]
     Indication: PARKINSON^S DISEASE
     Route: 065

REACTIONS (2)
  - Prostate cancer metastatic [Fatal]
  - Inappropriate schedule of drug administration [Not Recovered/Not Resolved]
